FAERS Safety Report 9154023 (Version 1)
Quarter: 2013Q1

REPORT INFORMATION
  Report Type: Spontaneous
  Country: US (occurrence: None)
  Receive Date: 20130206
  Receipt Date: 20130206
  Transmission Date: 20140127
  Serious: Yes (Life-Threatening, Other)
  Sender: FDA-Public Use
  Company Number: 001472632A

PATIENT
  Age: 67 Year
  Sex: Female

DRUGS (8)
  1. PROACTIVE RENEWING CLEANSER [Suspect]
     Dosage: ONCE DAILY DERMAL
     Dates: start: 20121228
  2. PROACTIV REPAIRING TREATMENT [Suspect]
     Dosage: ONCE DAILY DERMAL
     Dates: start: 20121228
  3. METFORMIN [Concomitant]
  4. GLIPIZIDE [Concomitant]
  5. LOSARTAN [Concomitant]
  6. SPIRIVA [Concomitant]
  7. CYMBALTA [Concomitant]
  8. SINGULAIR [Concomitant]

REACTIONS (1)
  - Urticaria [None]
